FAERS Safety Report 20185119 (Version 3)
Quarter: 2022Q3

REPORT INFORMATION
  Report Type: Spontaneous
  Country: CA (occurrence: CA)
  Receive Date: 20211215
  Receipt Date: 20220908
  Transmission Date: 20221027
  Serious: Yes (Hospitalization)
  Sender: FDA-Public Use
  Company Number: CA-HRARD-2021000910

PATIENT
  Age: 73 Year
  Sex: Male

DRUGS (2)
  1. LYSODREN [Suspect]
     Active Substance: MITOTANE
     Indication: Adrenocortical carcinoma
     Route: 048
     Dates: start: 202006, end: 2021
  2. LYSODREN [Suspect]
     Active Substance: MITOTANE
     Indication: Adrenocortical carcinoma
     Dosage: 04 PILLS PER DAY
     Route: 048
     Dates: start: 202201, end: 20220724

REACTIONS (3)
  - Anaemia [Recovered/Resolved]
  - Fatigue [Unknown]
  - Drug ineffective [Not Recovered/Not Resolved]

NARRATIVE: CASE EVENT DATE: 20210101
